FAERS Safety Report 12518779 (Version 1)
Quarter: 2016Q2

REPORT INFORMATION
  Report Type: Spontaneous
  Country: US (occurrence: US)
  Receive Date: 20160630
  Receipt Date: 20160630
  Transmission Date: 20160815
  Serious: No
  Sender: FDA-Public Use
  Company Number: US-GLAXOSMITHKLINE-US2016093034

PATIENT
  Age: 73 Year
  Sex: Female

DRUGS (1)
  1. VOLTAREN [Suspect]
     Active Substance: DICLOFENAC SODIUM
     Indication: HYPOAESTHESIA
     Dosage: UNK
     Dates: start: 20160609

REACTIONS (6)
  - Muscle twitching [Not Recovered/Not Resolved]
  - Arthralgia [Not Recovered/Not Resolved]
  - Drug administered at inappropriate site [Unknown]
  - Off label use [Unknown]
  - Gait disturbance [Unknown]
  - Back pain [Unknown]

NARRATIVE: CASE EVENT DATE: 20160622
